FAERS Safety Report 6923686-6 (Version None)
Quarter: 2010Q3

REPORT INFORMATION
  Report Type: 
  Country: None (occurrence: None)
  Receive Date: 20100813
  Receipt Date: 20100805
  Transmission Date: 20110219
  Serious: Yes (Other)
  Sender: FDA-Public Use
  Company Number: B0669005A

PATIENT
  Sex: Female

DRUGS (22)
  1. TYKERB [Suspect]
     Indication: BREAST CANCER
     Dosage: 1250MG PER DAY
     Route: 048
     Dates: start: 20090805, end: 20090908
  2. TYKERB [Suspect]
     Dosage: 1250MG PER DAY
     Route: 048
     Dates: start: 20091007, end: 20091025
  3. TYKERB [Suspect]
     Dosage: 1250MG PER DAY
     Route: 048
     Dates: start: 20091028, end: 20091208
  4. TYKERB [Suspect]
     Dosage: 1250MG PER DAY
     Route: 048
     Dates: start: 20100106, end: 20100117
  5. TYKERB [Suspect]
     Dosage: 1250MG PER DAY
     Route: 048
     Dates: start: 20100529
  6. XELODA [Suspect]
     Dosage: 300MG PER DAY
     Route: 048
     Dates: start: 20090805, end: 20090908
  7. XELODA [Suspect]
     Dosage: 300MG PER DAY
     Route: 048
     Dates: start: 20091028, end: 20091118
  8. XELODA [Suspect]
     Dosage: 300MG PER DAY
     Route: 048
     Dates: start: 20091230, end: 20100112
  9. XELODA [Suspect]
     Dosage: 2400MG PER DAY
     Route: 048
     Dates: start: 20100529, end: 20100706
  10. XELODA [Suspect]
     Dosage: 2400MG PER DAY
     Route: 048
     Dates: start: 20100720
  11. ASPIRIN [Concomitant]
     Indication: MYOCARDIAL INFARCTION
     Route: 048
  12. LIPITOR [Concomitant]
     Route: 048
  13. MAGMITT [Concomitant]
     Indication: CONSTIPATION
     Route: 048
  14. MYSLEE [Concomitant]
     Indication: INSOMNIA
     Route: 048
  15. FORSENID [Concomitant]
     Indication: CONSTIPATION
     Route: 048
  16. ADOFEED [Concomitant]
     Indication: MUSCULOSKELETAL STIFFNESS
     Route: 062
  17. CALONAL [Concomitant]
     Route: 048
  18. FLUID REPLACEMENT [Concomitant]
     Indication: FLUID REPLACEMENT
     Route: 042
     Dates: start: 20100529, end: 20100630
  19. DOMPERIDON [Concomitant]
  20. CHINESE HERBAL MEDICINE [Concomitant]
  21. GASLON N [Concomitant]
  22. MEDROXYPROGESTERONE ACETATE [Concomitant]
     Indication: HORMONE THERAPY

REACTIONS (4)
  - BRAIN OEDEMA [None]
  - DIZZINESS [None]
  - HEADACHE [None]
  - METASTASES TO CENTRAL NERVOUS SYSTEM [None]
